FAERS Safety Report 7715674-7 (Version None)
Quarter: 2011Q3

REPORT INFORMATION
  Report Type: 
  Country: None (occurrence: None)
  Receive Date: 20110829
  Receipt Date: 20110825
  Transmission Date: 20111222
  Serious: Yes (Other)
  Sender: FDA-Public Use
  Company Number: AU-PFIZER INC-2011199928

PATIENT
  Age: 54 Year
  Sex: Female
  Weight: 75 kg

DRUGS (1)
  1. VARENICLINE TARTRATE [Suspect]
     Indication: SMOKING CESSATION THERAPY
     Dosage: 0.5 MG, 1X/DAY
     Route: 048
     Dates: start: 20110809, end: 20110813

REACTIONS (5)
  - DEPRESSION [None]
  - ANGER [None]
  - NAUSEA [None]
  - EYE SWELLING [None]
  - EMOTIONAL DISORDER [None]
